FAERS Safety Report 19300803 (Version 2)
Quarter: 2021Q2

REPORT INFORMATION
  Report Type: Spontaneous
  Country: BE (occurrence: BE)
  Receive Date: 20210524
  Receipt Date: 20210613
  Transmission Date: 20210717
  Serious: Yes (Hospitalization)
  Sender: FDA-Public Use
  Company Number: BE-TEVA-2021-BE-1914505

PATIENT
  Age: 78 Year
  Sex: Female
  Weight: 77 kg

DRUGS (13)
  1. FLOXAPEN [Concomitant]
     Active Substance: FLUCLOXACILLIN
     Dates: start: 20210401
  2. BELLOZAL [Concomitant]
     Active Substance: BILASTINE
     Dates: start: 20210319
  3. ENTRESTO [Suspect]
     Active Substance: SACUBITRIL\VALSARTAN
     Dates: start: 20210322
  4. ZYLOTIC [Concomitant]
     Dates: start: 2010
  5. MENTHOLCREME [Concomitant]
     Indication: NEURODERMATITIS
     Dosage: 1 UNIT
  6. BISOPROLOL [Suspect]
     Active Substance: BISOPROLOL
     Route: 065
     Dates: start: 20210430
  7. BURINEX [Suspect]
     Active Substance: BUMETANIDE
     Dates: start: 20210323
  8. ELIQUIS [Concomitant]
     Active Substance: APIXABAN
     Dates: start: 20210319
  9. BISOPROLOL [Suspect]
     Active Substance: BISOPROLOL
     Route: 065
     Dates: start: 20210321
  10. ALDACTONE [Suspect]
     Active Substance: SPIRONOLACTONE
     Dates: start: 20210318
  11. BETAMETHASONE DIPROPIONATE. [Concomitant]
     Active Substance: BETAMETHASONE DIPROPIONATE
     Dates: start: 20201112
  12. ATARAX [Concomitant]
     Active Substance: HYDROXYZINE HYDROCHLORIDE
     Dates: start: 20201112
  13. DAFLON [Concomitant]
     Dates: start: 20210319

REACTIONS (1)
  - Acute kidney injury [Recovered/Resolved]

NARRATIVE: CASE EVENT DATE: 20210429
